FAERS Safety Report 7965098-2 (Version None)
Quarter: 2011Q4

REPORT INFORMATION
  Report Type: 
  Country: None (occurrence: None)
  Receive Date: 20111208
  Receipt Date: 20111126
  Transmission Date: 20120403
  Serious: Yes (Hospitalization, Other)
  Sender: FDA-Public Use
  Company Number: US-BAYER-2011-083267

PATIENT
  Age: 40 Year
  Sex: Female
  Weight: 95.238 kg

DRUGS (8)
  1. ADVAIR DISKUS 100/50 [Concomitant]
     Dosage: UNK
     Dates: start: 20090507
  2. DILTIAZEM HCL [Concomitant]
     Indication: BLOOD PRESSURE ABNORMAL
     Dosage: UNK
     Dates: start: 20031001
  3. FAMOTIDINE [Concomitant]
     Indication: GASTROOESOPHAGEAL REFLUX DISEASE
     Dosage: UNK
     Dates: start: 20090701, end: 20100301
  4. ALBUTEROL [Concomitant]
     Dosage: UNK
     Dates: start: 20090507
  5. HYDROCODONE BITARTRATE AND ACETAMINOPHEN [Concomitant]
     Indication: PAIN
     Dosage: UNK
     Dates: start: 20090902
  6. YASMIN [Suspect]
     Indication: MENSTRUAL CYCLE MANAGEMENT
     Dosage: UNK
     Dates: start: 20020601, end: 20040901
  7. TRIAMTEREN HCT [Concomitant]
     Indication: POLYURIA
     Dosage: UNK
     Dates: start: 20031001
  8. ONDANSETRON [Concomitant]
     Indication: NAUSEA
     Dosage: 4 MG, UNK
     Dates: start: 20090902

REACTIONS (44)
  - BILIARY ANASTOMOSIS COMPLICATION [None]
  - MYOCARDIAL INFARCTION [None]
  - BILE DUCT OBSTRUCTION [None]
  - CELLULITIS [None]
  - HYPOKALAEMIA [None]
  - WEIGHT DECREASED [None]
  - HAEMATOMA [None]
  - PAIN [None]
  - TOBACCO ABUSE [None]
  - VULVOVAGINAL CANDIDIASIS [None]
  - HEART RATE INCREASED [None]
  - HYPERMAGNESAEMIA [None]
  - BILE DUCT STONE [None]
  - HYPERLIPIDAEMIA [None]
  - MALNUTRITION [None]
  - CORONARY ARTERY DISSECTION [None]
  - CHOLELITHIASIS [None]
  - GASTRITIS [None]
  - ARTHRITIS [None]
  - HYPOPHAGIA [None]
  - HYPOPHOSPHATAEMIA [None]
  - DRUG ERUPTION [None]
  - GALLBLADDER DISORDER [None]
  - INJURY [None]
  - BILIARY COLIC [None]
  - GASTROOESOPHAGEAL REFLUX DISEASE [None]
  - ASTHMA [None]
  - CORONARY ARTERY DISEASE [None]
  - CHOLECYSTITIS CHRONIC [None]
  - CHOLANGITIS [None]
  - BILE DUCT STENOSIS [None]
  - CYANOSIS [None]
  - HYPOTENSION [None]
  - HYPERALBUMINAEMIA [None]
  - POST PROCEDURAL HAEMORRHAGE [None]
  - HEPATIC STEATOSIS [None]
  - CHRONIC OBSTRUCTIVE PULMONARY DISEASE [None]
  - SEPSIS [None]
  - ANAEMIA OF CHRONIC DISEASE [None]
  - INJURY ASSOCIATED WITH DEVICE [None]
  - BILIARY FISTULA [None]
  - VASCULAR PSEUDOANEURYSM [None]
  - RETROPERITONEAL HAEMATOMA [None]
  - ACUTE MYOCARDIAL INFARCTION [None]
